FAERS Safety Report 10356658 (Version 5)
Quarter: 2016Q1

REPORT INFORMATION
  Report Type: Report from Study
  Country: US (occurrence: US)
  Receive Date: 20140801
  Receipt Date: 20160213
  Transmission Date: 20160525
  Serious: Yes (Hospitalization, Other)
  Sender: FDA-Public Use
  Company Number: US-AMGEN-USASP2014043726

PATIENT
  Age: 53 Year
  Sex: Female

DRUGS (4)
  1. HUMIRA [Concomitant]
     Active Substance: ADALIMUMAB
     Dosage: UNK
  2. ENBREL [Suspect]
     Active Substance: ETANERCEPT
     Dosage: UNK, UNK
     Route: 065
  3. ENBREL [Suspect]
     Active Substance: ETANERCEPT
     Dosage: UNK
     Route: 065
  4. ENBREL [Suspect]
     Active Substance: ETANERCEPT
     Indication: PSORIASIS
     Dosage: 50 MG, QWK
     Route: 065
     Dates: start: 20041001

REACTIONS (52)
  - Gastroenteritis salmonella [Recovered/Resolved]
  - Fluid retention [Recovered/Resolved]
  - Ear discomfort [Not Recovered/Not Resolved]
  - Skin atrophy [Unknown]
  - Fatigue [Not Recovered/Not Resolved]
  - Arthralgia [Unknown]
  - Loss of consciousness [Unknown]
  - Neuropathy peripheral [Not Recovered/Not Resolved]
  - Cough [Not Recovered/Not Resolved]
  - Ammonia increased [Unknown]
  - Nasal discomfort [Not Recovered/Not Resolved]
  - Throat irritation [Not Recovered/Not Resolved]
  - Asthenia [Not Recovered/Not Resolved]
  - Finger deformity [Unknown]
  - Peripheral swelling [Unknown]
  - Blood disorder [Not Recovered/Not Resolved]
  - Stress [Not Recovered/Not Resolved]
  - Bronchitis chronic [Recovered/Resolved]
  - Memory impairment [Unknown]
  - Confusional state [Recovered/Resolved]
  - Hepatitis C [Recovered/Resolved]
  - Aphonia [Not Recovered/Not Resolved]
  - Dysphonia [Not Recovered/Not Resolved]
  - Dyspnoea [Not Recovered/Not Resolved]
  - Vomiting [Not Recovered/Not Resolved]
  - Blister [Unknown]
  - Mood altered [Not Recovered/Not Resolved]
  - Gait disturbance [Not Recovered/Not Resolved]
  - Burning sensation [Recovered/Resolved]
  - Escherichia infection [Recovered/Resolved]
  - Incoherent [Recovered/Resolved]
  - Hepatic failure [Not Recovered/Not Resolved]
  - Dizziness [Not Recovered/Not Resolved]
  - Gastroenteritis viral [Unknown]
  - Fear of injection [Unknown]
  - Hyperventilation [Unknown]
  - Gait disturbance [Unknown]
  - Pain [Unknown]
  - Hepatic cirrhosis [Not Recovered/Not Resolved]
  - Visual acuity reduced [Not Recovered/Not Resolved]
  - Nasopharyngitis [Unknown]
  - Back disorder [Not Recovered/Not Resolved]
  - Swelling [Recovering/Resolving]
  - Psoriasis [Recovered/Resolved]
  - Coma [Unknown]
  - Pyrexia [Not Recovered/Not Resolved]
  - Oral candidiasis [Not Recovered/Not Resolved]
  - Chest pain [Not Recovered/Not Resolved]
  - Mobility decreased [Not Recovered/Not Resolved]
  - Fall [Not Recovered/Not Resolved]
  - Condition aggravated [Recovered/Resolved]
  - Pain in extremity [Unknown]

NARRATIVE: CASE EVENT DATE: 2011
